FAERS Safety Report 9391009 (Version 1)
Quarter: 2013Q3

REPORT INFORMATION
  Report Type: Spontaneous
  Country: FR (occurrence: FR)
  Receive Date: 20130709
  Receipt Date: 20130709
  Transmission Date: 20140515
  Serious: Yes (Hospitalization)
  Sender: FDA-Public Use
  Company Number: FR-BAYER-2013-082482

PATIENT
  Age: 67 Year
  Sex: Female

DRUGS (10)
  1. IZILOX [Suspect]
     Indication: PULMONARY TUBERCULOSIS
     Dosage: 1 DF, QD
     Route: 048
     Dates: start: 20130531, end: 20130603
  2. RIFADINE [Concomitant]
     Indication: PULMONARY TUBERCULOSIS
     Dosage: 1 DF, BID
     Route: 048
     Dates: start: 20130521
  3. PIRILENE [Concomitant]
     Indication: PULMONARY TUBERCULOSIS
     Dosage: 1 DF, TID
     Route: 048
     Dates: start: 20130525
  4. DEXAMBUTOL [Concomitant]
     Indication: PULMONARY TUBERCULOSIS
     Dosage: 1 DF, BID
     Route: 048
     Dates: start: 20130528
  5. ZESTORETIC [Concomitant]
     Dosage: UNK
  6. ELISOR [Concomitant]
     Dosage: UNK
  7. DITROPAN [Concomitant]
     Dosage: UNK
  8. SEROPLEX [Concomitant]
     Dosage: UNK
  9. DOLIPRANE [Concomitant]
     Dosage: 1 DF, TID
     Route: 048
     Dates: start: 20130524
  10. DOLIPRANE [Concomitant]
     Dosage: UNK
     Route: 048
     Dates: start: 20130604

REACTIONS (4)
  - Pyrexia [Recovered/Resolved]
  - Rash macular [Recovered/Resolved]
  - Rash morbilliform [Recovered/Resolved]
  - Nausea [Recovered/Resolved]
